FAERS Safety Report 20417736 (Version 1)
Quarter: 2022Q1

REPORT INFORMATION
  Report Type: Spontaneous
  Country: US (occurrence: None)
  Receive Date: 20220202
  Receipt Date: 20220202
  Transmission Date: 20220423
  Serious: Yes (Other)
  Sender: FDA-Public Use
  Company Number: None

PATIENT
  Age: 45 Year
  Sex: Male
  Weight: 74.25 kg

DRUGS (1)
  1. BUPRENORPHINE\NALOXONE [Suspect]
     Active Substance: BUPRENORPHINE\NALOXONE
     Indication: Drug dependence
     Dosage: 0 UG  3 TIMES A DAY?
     Route: 060
     Dates: start: 20190319, end: 20190324

REACTIONS (5)
  - Fatigue [None]
  - Nausea [None]
  - Vomiting [None]
  - Product substitution issue [None]
  - Disease recurrence [None]

NARRATIVE: CASE EVENT DATE: 20190326
